FAERS Safety Report 15059036 (Version 1)
Quarter: 2018Q2

REPORT INFORMATION
  Report Type: Spontaneous
  Country: TR (occurrence: TR)
  Receive Date: 20180625
  Receipt Date: 20180625
  Transmission Date: 20180711
  Serious: Yes (Hospitalization)
  Sender: FDA-Public Use
  Company Number: TR-NOVAST LABORATORIES, LTD-TR-2018NOV000227

PATIENT
  Age: 32 Year
  Sex: Male

DRUGS (1)
  1. CLOBETASOL PROPIONATE. [Suspect]
     Active Substance: CLOBETASOL PROPIONATE
     Indication: PSORIASIS
     Dosage: 150 MG, PER WEEK
     Route: 061

REACTIONS (2)
  - Adrenocorticotropic hormone deficiency [Unknown]
  - Cushing^s syndrome [Unknown]
